FAERS Safety Report 4536588-X (Version None)
Quarter: 2004Q4

REPORT INFORMATION
  Report Type: 
  Country: None (occurrence: None)
  Receive Date: 20041220
  Receipt Date: 20041206
  Transmission Date: 20050328
  Serious: Yes (Other)
  Sender: FDA-Public Use
  Company Number: USA-2004-0017902

PATIENT
  Age: 32 Year
  Sex: Male

DRUGS (3)
  1. OXYCONTIN [Suspect]
     Indication: PAIN
  2. PARCOCET (OXYCODONE HYDROCHLORIDE, PARACETAMOL) [Suspect]
  3. VALIUM [Concomitant]

REACTIONS (9)
  - AGGRESSION [None]
  - AGITATION [None]
  - ANGER [None]
  - BACK PAIN [None]
  - DIZZINESS [None]
  - DRUG WITHDRAWAL SYNDROME [None]
  - INSOMNIA [None]
  - INTENTIONAL SELF-INJURY [None]
  - SUICIDE ATTEMPT [None]
